FAERS Safety Report 23252209 (Version 1)
Quarter: 2023Q4

REPORT INFORMATION
  Report Type: Spontaneous
  Country: CN (occurrence: CN)
  Receive Date: 20231201
  Receipt Date: 20231201
  Transmission Date: 20240109
  Serious: Yes (Other)
  Sender: FDA-Public Use
  Company Number: CN-BoehringerIngelheim-2023-BI-274722

PATIENT
  Age: 47 Year
  Sex: Male
  Weight: 82 kg

DRUGS (4)
  1. ALTEPLASE [Suspect]
     Active Substance: ALTEPLASE
     Indication: Thrombolysis
     Route: 042
     Dates: start: 20231112, end: 20231112
  2. ALTEPLASE [Suspect]
     Active Substance: ALTEPLASE
     Route: 042
     Dates: start: 20231112, end: 20231112
  3. URAPIDIL [Suspect]
     Active Substance: URAPIDIL
     Indication: Hypotension
     Route: 042
     Dates: start: 20231112, end: 20231112
  4. SODIUM CHLORIDE [Concomitant]
     Active Substance: SODIUM CHLORIDE
     Indication: Drug therapy
     Route: 042
     Dates: start: 20231112, end: 20231112

REACTIONS (8)
  - Haemorrhagic transformation stroke [Recovering/Resolving]
  - Decreased activity [Recovering/Resolving]
  - Dizziness [Recovering/Resolving]
  - Chest discomfort [Recovering/Resolving]
  - Dysarthria [Recovering/Resolving]
  - Hyperhidrosis [Recovering/Resolving]
  - Epistaxis [Recovering/Resolving]
  - Nasal obstruction [Recovering/Resolving]

NARRATIVE: CASE EVENT DATE: 20231112
